FAERS Safety Report 15254253 (Version 12)
Quarter: 2019Q3

REPORT INFORMATION
  Report Type: Spontaneous
  Country: CA (occurrence: CA)
  Receive Date: 20180808
  Receipt Date: 20190905
  Transmission Date: 20191004
  Serious: Yes (Hospitalization, Other)
  Sender: FDA-Public Use
  Company Number: CA-CELLTRION INC.-2018CA021834

PATIENT

DRUGS (27)
  1. INFLECTRA [Suspect]
     Active Substance: INFLIXIMAB-DYYB
     Dosage: 700 MG, WEEK 0, 2, 6 THEN EVERY 8 WEEKS
     Route: 042
     Dates: start: 20180910, end: 20180910
  2. INFLECTRA [Suspect]
     Active Substance: INFLIXIMAB-DYYB
     Dosage: 700 MG, WEEK 0, 2, 6 THEN EVERY 8 WEEKS
     Route: 042
     Dates: start: 20190206, end: 20190206
  3. PREDNISONE. [Concomitant]
     Active Substance: PREDNISONE
     Dosage: 40MG TO 0MG (TAPERING DOSES), 1X/DAY
     Route: 048
  4. INFLECTRA [Suspect]
     Active Substance: INFLIXIMAB-DYYB
     Dosage: 700 MG, EVERY 4 WEEKS
     Route: 042
     Dates: start: 20190604
  5. ERYTHROMYCIN. [Concomitant]
     Active Substance: ERYTHROMYCIN
     Dosage: UNK
  6. DEMEROL [Concomitant]
     Active Substance: MEPERIDINE HYDROCHLORIDE
     Dosage: UNK
  7. INFLECTRA [Suspect]
     Active Substance: INFLIXIMAB-DYYB
     Dosage: 700 MG, WEEK 0, 2, 6 THEN EVERY 8 WEEKS
     Route: 042
     Dates: start: 20180910, end: 20180910
  8. INFLECTRA [Suspect]
     Active Substance: INFLIXIMAB-DYYB
     Dosage: 700 MG, EVERY 4 WEEKS
     Route: 042
     Dates: start: 20190724
  9. INFLECTRA [Suspect]
     Active Substance: INFLIXIMAB-DYYB
     Indication: CROHN^S DISEASE
     Dosage: 700 MG, WEEK 0, 2, 6 THEN EVERY 8 WEEKS
     Route: 042
     Dates: start: 20180720, end: 20180720
  10. INFLECTRA [Suspect]
     Active Substance: INFLIXIMAB-DYYB
     Dosage: 700 MG, WEEK 0, 2, 6 THEN EVERY 8 WEEKS
     Route: 042
     Dates: start: 20181212, end: 20181212
  11. INFLECTRA [Suspect]
     Active Substance: INFLIXIMAB-DYYB
     Dosage: 700 MG, EVERY 6 WEEKS
     Route: 042
     Dates: start: 20190501, end: 20190501
  12. INFLECTRA [Suspect]
     Active Substance: INFLIXIMAB-DYYB
     Dosage: 700 MG, EVERY 4 WEEKS
     Route: 042
     Dates: start: 20190604
  13. INFLECTRA [Suspect]
     Active Substance: INFLIXIMAB-DYYB
     Dosage: 700 MG, EVERY 4 WEEKS
     Route: 042
     Dates: start: 20190604
  14. INFLECTRA [Suspect]
     Active Substance: INFLIXIMAB-DYYB
     Dosage: 700 MG, EVERY 4 WEEKS
     Route: 042
     Dates: start: 20190826
  15. CALCIUM [Concomitant]
     Active Substance: CALCIUM
     Dosage: UNK, 1X/DAY
     Route: 048
  16. INFLECTRA [Suspect]
     Active Substance: INFLIXIMAB-DYYB
     Dosage: 700 MG, EVERY 6 WEEKS
     Route: 042
     Dates: start: 20190319, end: 20190319
  17. INFLECTRA [Suspect]
     Active Substance: INFLIXIMAB-DYYB
     Dosage: 700 MG, WEEK 0, 2, 6 THEN EVERY 8 WEEKS
     Route: 042
     Dates: start: 20180808, end: 20180808
  18. INFLECTRA [Suspect]
     Active Substance: INFLIXIMAB-DYYB
     Dosage: 700 MG, WEEK 0, 2, 6 THEN EVERY 8 WEEKS
     Route: 042
     Dates: start: 20180910, end: 20180910
  19. INFLECTRA [Suspect]
     Active Substance: INFLIXIMAB-DYYB
     Dosage: 700 MG, WEEK 0, 2, 6 THEN EVERY 8 WEEKS
     Route: 042
     Dates: start: 20180910, end: 20180910
  20. VITAMIN D [Concomitant]
     Active Substance: VITAMIN D NOS
     Dosage: UNK, 1X/DAY
     Route: 048
  21. INFLECTRA [Suspect]
     Active Substance: INFLIXIMAB-DYYB
     Dosage: 700 MG, EVERY 4 WEEKS
     Route: 042
     Dates: start: 20190604
  22. OXYNEO [Concomitant]
     Active Substance: OXYCODONE
     Dosage: 40 MG, 3X/DAY
     Route: 048
  23. ACYCLOVIR. [Concomitant]
     Active Substance: ACYCLOVIR
     Indication: ORAL HERPES
     Dosage: UNK, AS NEEDED
  24. MULTIVITAMIN [Concomitant]
     Active Substance: VITAMINS
     Dosage: UNK, 1X/DAY
     Route: 048
  25. INFLECTRA [Suspect]
     Active Substance: INFLIXIMAB-DYYB
     Dosage: 700 MG, WEEK 0, 2, 6 THEN EVERY 8 WEEKS
     Route: 042
     Dates: start: 20180808, end: 20180808
  26. DULOXETINE. [Concomitant]
     Active Substance: DULOXETINE
     Dosage: 3 CAPSULES, 1X/DAY
     Route: 048
  27. AMITRIPTYLINE [Concomitant]
     Active Substance: AMITRIPTYLINE
     Dosage: 50 MG, AT BEDTIME
     Route: 048

REACTIONS (15)
  - Malaise [Unknown]
  - Product use issue [Unknown]
  - Obstruction [Unknown]
  - Blood pressure fluctuation [Unknown]
  - Cough [Unknown]
  - Oropharyngeal pain [Unknown]
  - Ear discomfort [Unknown]
  - Inappropriate schedule of product administration [Unknown]
  - Therapeutic product effect incomplete [Unknown]
  - Condition aggravated [Recovering/Resolving]
  - Off label use [Unknown]
  - Pneumonia [Recovered/Resolved]
  - Decreased immune responsiveness [Unknown]
  - Impetigo [Unknown]
  - Oxygen saturation abnormal [Unknown]

NARRATIVE: CASE EVENT DATE: 2018
